FAERS Safety Report 11844103 (Version 2)
Quarter: 2016Q1

REPORT INFORMATION
  Report Type: Spontaneous
  Country: US (occurrence: US)
  Receive Date: 20151217
  Receipt Date: 20160225
  Transmission Date: 20160526
  Serious: No
  Sender: FDA-Public Use
  Company Number: PHEH2015US026022

PATIENT
  Age: 77 Year
  Sex: Female

DRUGS (3)
  1. LEVOTHYROXINE. [Concomitant]
     Active Substance: LEVOTHYROXINE
     Indication: HYPOTHYROIDISM
     Dosage: 100 MG, QD
     Route: 048
  2. GLEEVEC [Suspect]
     Active Substance: IMATINIB MESYLATE
     Indication: SOFT TISSUE NEOPLASM
     Dosage: 300 MG, BID
     Route: 048
     Dates: start: 20140503, end: 20151012
  3. ADVIL [Concomitant]
     Active Substance: IBUPROFEN
     Indication: PRODUCT USED FOR UNKNOWN INDICATION
     Dosage: 200 MG, PRN
     Route: 048

REACTIONS (3)
  - Decreased appetite [Unknown]
  - Nausea [Unknown]
  - Secretion discharge [Unknown]

NARRATIVE: CASE EVENT DATE: 20151011
